FAERS Safety Report 8923165 (Version 2)
Quarter: 2014Q2

REPORT INFORMATION
  Report Type: Spontaneous
  Country: US (occurrence: US)
  Receive Date: 20121123
  Receipt Date: 20131018
  Transmission Date: 20141212
  Serious: Yes (Other)
  Sender: FDA-Public Use
  Company Number: US-PFIZER INC-2012288213

PATIENT
  Age: 55 Year
  Sex: Female
  Weight: 40.82 kg

DRUGS (6)
  1. CORTEF [Suspect]
     Indication: ADRENAL INSUFFICIENCY
     Route: 048
  2. SOLU-CORTEF [Suspect]
     Indication: ADRENAL INSUFFICIENCY
     Dosage: UNKNOWN DOSE 24X7
     Dates: start: 201011
  3. HYDROCORTISONE [Suspect]
     Indication: ADRENAL INSUFFICIENCY
     Route: 048
  4. HYDROCORTISONE ACETATE [Suspect]
     Indication: ADRENAL INSUFFICIENCY
     Dosage: 10 PERCENTAGE, UNK
  5. CYTOMEL [Concomitant]
     Indication: HYPOTHYROIDISM
     Dosage: UNK
  6. DESSICATED THYROID [Concomitant]
     Indication: HYPOTHYROIDISM
     Dosage: UNK

REACTIONS (5)
  - Gastric ulcer [Unknown]
  - Off label use [Unknown]
  - Incorrect dose administered [Unknown]
  - Wrong technique in drug usage process [Unknown]
  - Drug effect decreased [Unknown]
